FAERS Safety Report 6417621-7 (Version None)
Quarter: 2009Q4

REPORT INFORMATION
  Report Type: 
  Country: None (occurrence: None)
  Receive Date: 20091028
  Receipt Date: 20090309
  Transmission Date: 20100525
  Serious: Yes (Disabling, Other)
  Sender: FDA-Public Use
  Company Number: US-BAYER-200917916NA

PATIENT
  Age: 42 Year
  Sex: Male

DRUGS (21)
  1. MAGNEVIST [Suspect]
     Indication: NUCLEAR MAGNETIC RESONANCE IMAGING
  2. OMNISCAN [Suspect]
     Indication: NUCLEAR MAGNETIC RESONANCE IMAGING
  3. OPTIMARK [Suspect]
     Indication: NUCLEAR MAGNETIC RESONANCE IMAGING
  4. GLUCAGON [Concomitant]
     Indication: HYPOGLYCAEMIA
  5. LOVAZA [Concomitant]
     Indication: BLOOD TRIGLYCERIDES DECREASED
     Dosage: AS USED: 1 G
  6. LABETALOL HCL [Concomitant]
     Indication: HYPERTENSION
     Dosage: TOTAL DAILY DOSE: 600 MG
     Route: 048
  7. NOVOLOG [Concomitant]
     Indication: DIABETES MELLITUS
     Dosage: 100 U/ML
     Dates: start: 20070101
  8. DICLOFENAC SODIUM XR [Concomitant]
     Indication: ARTHRITIS
     Dosage: AS USED: 100 MG
     Route: 048
  9. LANTUS [Concomitant]
     Indication: DIABETES MELLITUS
     Dosage: DOSE: 100 U/ML
     Dates: start: 20070101
  10. VICODIN [Concomitant]
     Indication: PAIN
     Dates: start: 20080101
  11. ULTRACE [Concomitant]
     Indication: PAIN
     Dates: start: 20080101
  12. CHEMOTHERAPY NOS [Concomitant]
     Indication: NEOPLASM MALIGNANT
     Dates: start: 20030101, end: 20040101
  13. PREDNISONE [Concomitant]
     Dosage: TOTAL DAILY DOSE: 5 MG
     Dates: start: 19920101
  14. CARTIA XT [Concomitant]
     Indication: ANGINA PECTORIS
     Dosage: TOTAL DAILY DOSE: 360 MG
     Route: 048
  15. CELLCEPT [Concomitant]
     Indication: IMMUNODEFICIENCY
     Dosage: TOTAL DAILY DOSE: 1000 MG
     Dates: start: 19990101
  16. RANITIDINE [Concomitant]
     Indication: GASTRIC PH INCREASED
     Dosage: TOTAL DAILY DOSE: 150 MG
  17. GLIPIZIDE [Concomitant]
     Indication: DIABETES MELLITUS
     Dosage: TOTAL DAILY DOSE: 20 MG
     Route: 048
     Dates: start: 20070101
  18. THEREMS [Concomitant]
     Indication: VITAMIN SUPPLEMENTATION
  19. TRAMADOL HYDROCHLORIDE AND ACETAMINOPHEN [Concomitant]
     Indication: PAIN
     Dosage: 37.5/ 325 TID
  20. FEXOFENADINE [Concomitant]
     Indication: MULTIPLE ALLERGIES
     Dosage: TOTAL DAILY DOSE: 180 MG
  21. PROGRAF [Concomitant]
     Indication: IMMUNOSUPPRESSION
     Dosage: TOTAL DAILY DOSE: 1.5 MG
     Dates: start: 19990101

REACTIONS (14)
  - ANXIETY [None]
  - ASTHENIA [None]
  - EMOTIONAL DISTRESS [None]
  - EXTREMITY CONTRACTURE [None]
  - FIBROSIS [None]
  - GAIT DISTURBANCE [None]
  - GENERAL PHYSICAL HEALTH DETERIORATION [None]
  - JOINT CONTRACTURE [None]
  - MOBILITY DECREASED [None]
  - MUSCULOSKELETAL STIFFNESS [None]
  - NEPHROGENIC SYSTEMIC FIBROSIS [None]
  - PAIN [None]
  - SCAR [None]
  - SKIN FIBROSIS [None]
